FAERS Safety Report 8609607-9 (Version None)
Quarter: 2012Q3

REPORT INFORMATION
  Report Type: 
  Country: None (occurrence: None)
  Receive Date: 20120810
  Receipt Date: 20120810
  Transmission Date: 20120928
  Serious: Yes (Life-Threatening, Hospitalization)
  Sender: FDA-Public Use
  Company Number: None

PATIENT
  Sex: Female

DRUGS (1)
  1. WARFARIN SODIUM [Suspect]
     Indication: AORTIC VALVE REPLACEMENT
     Dates: start: 20010101

REACTIONS (4)
  - CEREBROVASCULAR ACCIDENT [None]
  - COAGULOPATHY [None]
  - TRANSIENT ISCHAEMIC ATTACK [None]
  - DISEASE RECURRENCE [None]
